FAERS Safety Report 4704623-1 (Version None)
Quarter: 2005Q2

REPORT INFORMATION
  Report Type: 
  Country: None (occurrence: None)
  Receive Date: 20050630
  Receipt Date: 20050524
  Transmission Date: 20051028
  Serious: Yes (Hospitalization)
  Sender: FDA-Public Use
  Company Number: JP-MERCK-0505USA03097

PATIENT
  Age: 64 Year
  Sex: Female

DRUGS (5)
  1. SINGULAIR [Suspect]
     Indication: ASTHMA
     Route: 048
     Dates: start: 20041001, end: 20041012
  2. FLUTIDE [Concomitant]
     Indication: ASTHMA
     Route: 055
  3. SEREVENT [Concomitant]
     Indication: ASTHMA
     Route: 065
     Dates: start: 20040929
  4. TAGAMET [Concomitant]
     Route: 065
  5. THEO-DUR [Concomitant]
     Route: 065

REACTIONS (1)
  - ALLERGIC GRANULOMATOUS ANGIITIS [None]
